FAERS Safety Report 18205010 (Version 6)
Quarter: 2025Q3

REPORT INFORMATION
  Report Type: Report from Study
  Country: US (occurrence: US)
  Receive Date: 20200828
  Receipt Date: 20250707
  Transmission Date: 20251021
  Serious: Yes (Hospitalization, Other)
  Sender: TAKEDA
  Company Number: US-SHIRE-US202027911

PATIENT
  Age: 62 Year
  Sex: Female

DRUGS (3)
  1. HUMAN IMMUNOGLOBULIN G [Suspect]
     Active Substance: HUMAN IMMUNOGLOBULIN G
     Indication: Primary immunodeficiency syndrome
  2. HUMAN IMMUNOGLOBULIN G [Suspect]
     Active Substance: HUMAN IMMUNOGLOBULIN G
     Indication: Immunodeficiency common variable
  3. HUMAN IMMUNOGLOBULIN G [Suspect]
     Active Substance: HUMAN IMMUNOGLOBULIN G
     Indication: Dermatomyositis

REACTIONS (13)
  - Large intestine benign neoplasm [Unknown]
  - Cataract [Unknown]
  - Urinary tract infection [Unknown]
  - Infusion related reaction [Unknown]
  - Ear disorder [Unknown]
  - Musculoskeletal discomfort [Unknown]
  - Arthropathy [Unknown]
  - Synovial cyst [Unknown]
  - Feeling abnormal [Unknown]
  - Rash [Unknown]
  - Headache [Unknown]
  - Fatigue [Unknown]
  - Insurance issue [Unknown]

NARRATIVE: CASE EVENT DATE: 20240415
